FAERS Safety Report 14120330 (Version 1)
Quarter: 2017Q4

REPORT INFORMATION
  Report Type: Spontaneous
  Country: US (occurrence: US)
  Receive Date: 20171024
  Receipt Date: 20171024
  Transmission Date: 20180321
  Serious: Yes (Other)
  Sender: FDA-Public Use
  Company Number: US-APOTEX-2017AP020435

PATIENT
  Age: 53 Year
  Sex: Female

DRUGS (1)
  1. TAMOXIFEN CITRATE TABLETS USP [Suspect]
     Active Substance: TAMOXIFEN CITRATE
     Indication: OESTROGEN RECEPTOR POSITIVE BREAST CANCER
     Dosage: 20 MG, QD
     Route: 065

REACTIONS (1)
  - Maculopathy [Unknown]
